FAERS Safety Report 11832643 (Version 1)
Quarter: 2015Q4

REPORT INFORMATION
  Report Type: Report from Study
  Country: RU (occurrence: RU)
  Receive Date: 20151214
  Receipt Date: 20151214
  Transmission Date: 20160305
  Serious: Yes (Hospitalization, Other)
  Sender: FDA-Public Use
  Company Number: RU-TEVA-618078ISR

PATIENT
  Age: 52 Year
  Sex: Male
  Weight: 89 kg

DRUGS (5)
  1. VEROSPIRON [Concomitant]
     Active Substance: SPIRONOLACTONE
     Indication: HYPERTENSION
     Dosage: 25 MILLIGRAM DAILY;
     Route: 048
     Dates: start: 20150430
  2. CORDARON [Concomitant]
     Active Substance: AMIODARONE HYDROCHLORIDE
     Indication: ATRIAL FIBRILLATION
     Dosage: 200 MILLIGRAM DAILY;
     Route: 048
     Dates: start: 20151102
  3. NOLPAZA [Concomitant]
     Active Substance: PANTOPRAZOLE SODIUM
     Indication: DUODENAL ULCER
     Dosage: 20 MILLIGRAM DAILY;
     Route: 048
     Dates: start: 20150415
  4. BETALOC ZOK [Concomitant]
     Active Substance: METOPROLOL SUCCINATE
     Indication: ATRIAL FIBRILLATION
     Dosage: 50 MILLIGRAM DAILY;
     Route: 048
     Dates: start: 201411
  5. WARFARIN [Suspect]
     Active Substance: WARFARIN
     Indication: ATRIAL FIBRILLATION
     Dosage: 6 MILLIGRAM DAILY;
     Route: 048
     Dates: start: 20150911, end: 20151130

REACTIONS (4)
  - Cerebral haemorrhage [Unknown]
  - Fall [Unknown]
  - Craniocerebral injury [Unknown]
  - Contusion [Unknown]

NARRATIVE: CASE EVENT DATE: 20151124
